FAERS Safety Report 7484099-4 (Version None)
Quarter: 2011Q1

REPORT INFORMATION
  Report Type: 
  Country: None (occurrence: None)
  Receive Date: 20110309
  Receipt Date: 20110204
  Transmission Date: 20110831
  Serious: Yes (Other)
  Sender: FDA-Public Use
  Company Number: 2011SP005487

PATIENT
  Age: 50 Year
  Sex: Male

DRUGS (12)
  1. DIVALPROEX SODIUM [Concomitant]
  2. CITRATE OF MAGNESIA [Concomitant]
  3. PENTASA [Concomitant]
  4. LEVOTHYROXINE SODIUM [Concomitant]
  5. DIPHENHYDRAMINE HCL [Concomitant]
  6. SAPHRIS [Suspect]
     Indication: SCHIZOAFFECTIVE DISORDER BIPOLAR TYPE
     Dosage: 10 MG; BID; SL
     Route: 060
     Dates: start: 20101227
  7. DESMOPRESSIN ACETATE [Concomitant]
  8. MIRALAX [Concomitant]
  9. MOMETASONE FUROATE [Concomitant]
  10. LITHIUM CARBONATE [Concomitant]
  11. NASONEX [Concomitant]
  12. AMITIZA [Concomitant]

REACTIONS (1)
  - GRAND MAL CONVULSION [None]
